FAERS Safety Report 20207695 (Version 1)
Quarter: 2021Q4

REPORT INFORMATION
  Report Type: Spontaneous
  Country: FR (occurrence: FR)
  Receive Date: 20211220
  Receipt Date: 20211220
  Transmission Date: 20220303
  Serious: Yes (Other)
  Sender: FDA-Public Use
  Company Number: None

PATIENT
  Age: 18 Year
  Sex: Female

DRUGS (5)
  1. XANAX [Suspect]
     Active Substance: ALPRAZOLAM
     Dosage: UNK
     Route: 048
     Dates: start: 2020
  2. NITROUS OXIDE [Suspect]
     Active Substance: NITROUS OXIDE
     Route: 055
     Dates: start: 2020
  3. CANNABIS SATIVA SUBSP. INDICA TOP [Suspect]
     Active Substance: CANNABIS SATIVA SUBSP. INDICA TOP
     Dosage: ONCE A WEEK
     Route: 055
     Dates: start: 2019
  4. HEROIN [Suspect]
     Active Substance: DIAMORPHINE
     Dosage: IN PTC
     Dates: start: 2019
  5. TOBACCO LEAF [Suspect]
     Active Substance: TOBACCO LEAF
     Dosage: UP TO 10 CIGARETTES A DAY
     Route: 055
     Dates: start: 2019

REACTIONS (11)
  - Drug abuse [Not Recovered/Not Resolved]
  - Euphoric mood [Recovered/Resolved]
  - Withdrawal syndrome [Recovered/Resolved]
  - Sleep disorder [Recovered/Resolved]
  - Derealisation [Recovered/Resolved]
  - Feeling of relaxation [Recovered/Resolved]
  - Feeling abnormal [Recovered/Resolved]
  - Visual impairment [Recovered/Resolved]
  - Malaise [Recovered/Resolved]
  - Memory impairment [Recovered/Resolved]
  - Vertigo [Recovered/Resolved]

NARRATIVE: CASE EVENT DATE: 20190101
